FAERS Safety Report 15701845 (Version 1)
Quarter: 2018Q4

REPORT INFORMATION
  Report Type: Report from Study
  Country: US (occurrence: US)
  Receive Date: 20181208
  Receipt Date: 20181208
  Transmission Date: 20190205
  Serious: Yes (Other)
  Sender: FDA-Public Use
  Company Number: US-MALLINCKRODT-T201805252

PATIENT
  Sex: Male

DRUGS (1)
  1. REPOSITORY CORTICOTROPIN INJECTION [Suspect]
     Active Substance: CORTICOTROPIN
     Indication: AUTOIMMUNE DISORDER
     Dosage: 0.25 ML TWICE WEEKLY
     Route: 058
     Dates: start: 201707, end: 2018

REACTIONS (3)
  - Product storage error [Unknown]
  - Seizure [Unknown]
  - Choking [Unknown]
